FAERS Safety Report 19354379 (Version 6)
Quarter: 2024Q3

REPORT INFORMATION
  Report Type: Report from Study
  Country: IL (occurrence: IL)
  Receive Date: 20210602
  Receipt Date: 20240827
  Transmission Date: 20241017
  Serious: Yes (Death, Hospitalization)
  Sender: ABBVIE
  Company Number: IL-ABBVIE-20K-082-3646619-00

PATIENT
  Age: 68 Year
  Sex: Male

DRUGS (4)
  1. VENETOCLAX [Suspect]
     Active Substance: VENETOCLAX
     Indication: Chronic lymphocytic leukaemia
     Dosage: DAILY DOSE DOSE INCREASE ACCORDING TO VENETOCLAX DOSE TITRATION SCHEME?DURATION TEXT: SAE- DUE TO...
     Route: 048
     Dates: start: 20201104, end: 20201108
  2. VENETOCLAX [Suspect]
     Active Substance: VENETOCLAX
     Indication: Chronic lymphocytic leukaemia
     Route: 048
     Dates: start: 20201103, end: 20201103
  3. RITUXIMAB [Suspect]
     Active Substance: RITUXIMAB
     Indication: Chronic lymphocytic leukaemia
     Dosage: FREQUENCY TEXT: CYCLE NUMBER 1
     Route: 065
     Dates: start: 20201103, end: 20201103
  4. ALLOPURINOL [Concomitant]
     Active Substance: ALLOPURINOL
     Indication: Prophylaxis
     Dates: start: 20201029, end: 20201108

REACTIONS (2)
  - Richter^s syndrome [Fatal]
  - Fungal infection [Recovered/Resolved]

NARRATIVE: CASE EVENT DATE: 20201108
